FAERS Safety Report 6036016-1 (Version None)
Quarter: 2009Q1

REPORT INFORMATION
  Report Type: 
  Country: None (occurrence: None)
  Receive Date: 20090113
  Receipt Date: 20090109
  Transmission Date: 20090719
  Serious: Yes (Other)
  Sender: FDA-Public Use
  Company Number: FR-AVENTIS-200910041FR

PATIENT
  Age: 78 Year
  Sex: Male

DRUGS (2)
  1. TAXOTERE [Suspect]
     Indication: DRUG USE FOR UNKNOWN INDICATION
     Route: 042
  2. ZOMETA [Concomitant]
     Indication: DRUG USE FOR UNKNOWN INDICATION

REACTIONS (5)
  - GLAUCOMA [None]
  - MACULAR HOLE [None]
  - RETINITIS PIGMENTOSA [None]
  - SCOTOMA [None]
  - VISUAL ACUITY REDUCED [None]
